FAERS Safety Report 20706860 (Version 1)
Quarter: 2022Q2

REPORT INFORMATION
  Report Type: Spontaneous
  Country: US (occurrence: None)
  Receive Date: 20220413
  Receipt Date: 20220413
  Transmission Date: 20220721
  Serious: No
  Sender: FDA-Public Use
  Company Number: 2022A138471

PATIENT
  Age: 24845 Day
  Sex: Female
  Weight: 91.2 kg

DRUGS (1)
  1. BRILINTA [Suspect]
     Active Substance: TICAGRELOR
     Indication: Coronary arterial stent insertion
     Route: 048
     Dates: start: 20220401

REACTIONS (2)
  - Dyspnoea [Recovering/Resolving]
  - Condition aggravated [Recovering/Resolving]

NARRATIVE: CASE EVENT DATE: 20220401
